FAERS Safety Report 17116068 (Version 2)
Quarter: 2019Q4

REPORT INFORMATION
  Report Type: Report from Study
  Country: FR (occurrence: FR)
  Receive Date: 20191205
  Receipt Date: 20191211
  Transmission Date: 20200122
  Serious: Yes (Hospitalization, Other)
  Sender: FDA-Public Use
  Company Number: FR-ASTRAZENECA-2018SF45199

PATIENT
  Age: 22553 Day
  Sex: Male
  Weight: 70 kg

DRUGS (7)
  1. ESOMEPRAZOLE. [Concomitant]
     Active Substance: ESOMEPRAZOLE MAGNESIUM
     Indication: ADVERSE EVENT
     Route: 048
  2. DURVALUMAB. [Suspect]
     Active Substance: DURVALUMAB
     Indication: NON-SMALL CELL LUNG CANCER
     Dosage: 675 MG
     Route: 042
     Dates: start: 20181030
  3. DURVALUMAB. [Suspect]
     Active Substance: DURVALUMAB
     Indication: NON-SMALL CELL LUNG CANCER
     Dosage: 700 MG
     Route: 042
     Dates: start: 20181127
  4. COVERSYL [Concomitant]
     Active Substance: PERINDOPRIL
     Indication: HYPERTENSION
     Route: 048
  5. KARDEGIC [Concomitant]
     Active Substance: ASPIRIN DL-LYSINE
     Indication: PERIPHERAL ARTERIAL OCCLUSIVE DISEASE
     Route: 048
  6. DURVALUMAB. [Suspect]
     Active Substance: DURVALUMAB
     Indication: NON-SMALL CELL LUNG CANCER
     Dosage: 675 MG
     Route: 042
     Dates: start: 20190822
  7. DURVALUMAB. [Suspect]
     Active Substance: DURVALUMAB
     Indication: NON-SMALL CELL LUNG CANCER
     Dosage: 675 MG
     Route: 042
     Dates: start: 20181016

REACTIONS (6)
  - Platelet disorder [Not Recovered/Not Resolved]
  - Lung disorder [Recovering/Resolving]
  - Blood thyroid stimulating hormone abnormal [Recovered/Resolved]
  - Creatinine renal clearance abnormal [Unknown]
  - Haemoglobin abnormal [Unknown]
  - Respiratory distress [Unknown]

NARRATIVE: CASE EVENT DATE: 20181030
